FAERS Safety Report 24282708 (Version 1)
Quarter: 2024Q3

REPORT INFORMATION
  Report Type: Spontaneous
  Country: CA (occurrence: CA)
  Receive Date: 20240904
  Receipt Date: 20240904
  Transmission Date: 20241017
  Serious: Yes (Other)
  Sender: ANI
  Company Number: CA-ANIPHARMA-2024-CA-003852

PATIENT
  Age: 70 Year
  Sex: Female

DRUGS (3)
  1. CANDESARTAN [Suspect]
     Active Substance: CANDESARTAN
     Indication: Product used for unknown indication
  2. COVID-19 VACCINE NOS [Suspect]
     Active Substance: COVID-19 VACCINE
  3. STELARA [Suspect]
     Active Substance: USTEKINUMAB
     Dosage: 90 MG Q4WK / 90 MG Q4WK / 90 MG Q4WK
     Route: 058

REACTIONS (24)
  - Alopecia [Unknown]
  - Hypertension [Unknown]
  - Inappropriate schedule of product administration [Unknown]
  - Insomnia [Unknown]
  - Lipoedema [Unknown]
  - Lymphoedema [Unknown]
  - Malaise [Unknown]
  - Malnutrition [Unknown]
  - Pain [Unknown]
  - Pain in extremity [Unknown]
  - Pharyngitis [Unknown]
  - Arthralgia [Unknown]
  - Pneumonia [Unknown]
  - Product dose omission issue [Unknown]
  - Sinus disorder [Unknown]
  - Sleep disorder [Unknown]
  - Weight decreased [Unknown]
  - Chills [Unknown]
  - Conjunctivitis [Unknown]
  - Diarrhoea [Unknown]
  - Fatigue [Unknown]
  - Gastrointestinal inflammation [Unknown]
  - General physical health deterioration [Unknown]
  - Hyperhidrosis [Unknown]
